FAERS Safety Report 9034594 (Version 1)
Quarter: 2013Q1

REPORT INFORMATION
  Report Type: Spontaneous
  Country: US (occurrence: None)
  Receive Date: 20130116
  Receipt Date: 20130116
  Transmission Date: 20140127
  Serious: No
  Sender: FDA-Public Use
  Company Number: None

PATIENT
  Age: 64 Year
  Sex: Female

DRUGS (18)
  1. CEFTIN [Suspect]
     Dates: start: 20110705, end: 20110708
  2. DOXYCYCLINE HYCLATE [Suspect]
     Dates: start: 20110708, end: 20110717
  3. SYNTHROID [Concomitant]
  4. FOSAMAX [Concomitant]
  5. MOBIC [Concomitant]
  6. DHEA [Concomitant]
  7. BECONASE INHALER [Concomitant]
  8. CALTRATE [Concomitant]
  9. COQ [Concomitant]
  10. FEXOFENADINE HCL [Concomitant]
  11. PROGESTERONE SR [Concomitant]
  12. PROGESTERONE - 2% [Concomitant]
  13. TESTOSTERONE CREAM [Concomitant]
  14. VIT. C [Concomitant]
  15. COD LIVER OIL [Concomitant]
  16. PROBIOTIC [Concomitant]
  17. GLUCOSAMINE COMPLEX [Concomitant]
  18. FERROUS SULFATE. [Concomitant]

REACTIONS (4)
  - Drug-induced liver injury [None]
  - Rash [None]
  - Polymyalgia rheumatica [None]
  - Hepatitis [None]
